FAERS Safety Report 21264125 (Version 1)
Quarter: 2022Q3

REPORT INFORMATION
  Report Type: Spontaneous
  Country: US (occurrence: US)
  Receive Date: 20220829
  Receipt Date: 20220829
  Transmission Date: 20221027
  Serious: Yes (Other)
  Sender: FDA-Public Use
  Company Number: US-TOPROL-2022000258

PATIENT
  Age: 82 Year
  Sex: Female

DRUGS (2)
  1. METOPROLOL SUCCINATE [Suspect]
     Active Substance: METOPROLOL SUCCINATE
     Indication: Hypertension
     Route: 065
  2. ASPIRIN [Concomitant]
     Active Substance: ASPIRIN
     Indication: Product used for unknown indication

REACTIONS (5)
  - Cardiogenic shock [Recovered/Resolved]
  - Syncope [Unknown]
  - Confusional state [Unknown]
  - Hypotension [Unknown]
  - Device breakage [Unknown]
